FAERS Safety Report 7526380-6 (Version None)
Quarter: 2011Q2

REPORT INFORMATION
  Report Type: 
  Country: None (occurrence: None)
  Receive Date: 20110606
  Receipt Date: 20110531
  Transmission Date: 20111010
  Serious: Yes (Hospitalization)
  Sender: FDA-Public Use
  Company Number: US-PURDUE-USA-2011-0069334

PATIENT
  Sex: Male

DRUGS (2)
  1. PERCOCET [Concomitant]
     Indication: PRODUCT USED FOR UNKNOWN INDICATION
     Dosage: 10 MG, TID
  2. BUTRANS [Suspect]
     Indication: PAIN
     Dosage: 5 MCG/HR, DAILY

REACTIONS (1)
  - CARDIAC DISORDER [None]
